FAERS Safety Report 4298991-5 (Version None)
Quarter: 2004Q1

REPORT INFORMATION
  Report Type: 
  Country: None (occurrence: None)
  Receive Date: 20040217
  Receipt Date: 20040203
  Transmission Date: 20041129
  Serious: Yes (Disabling)
  Sender: FDA-Public Use
  Company Number: 2003-BP-10756AU

PATIENT
  Age: 17 Year
  Sex: Male

DRUGS (2)
  1. CATAPRES [Suspect]
     Dosage: 150 MCG (150 MCG, 150 MCG AT NIGHT)
     Dates: start: 19980101
  2. DEXAMPHETAMINE (TA) [Suspect]
     Dosage: 10 MG (NR, 10 MG IN THE MORNING)

REACTIONS (4)
  - DRUG INTERACTION [None]
  - HYPOTONIA [None]
  - MUSCULAR WEAKNESS [None]
  - SPEECH DISORDER [None]
